FAERS Safety Report 8142244-1 (Version None)
Quarter: 2012Q1

REPORT INFORMATION
  Report Type: 
  Country: None (occurrence: None)
  Receive Date: 20120103
  Receipt Date: 20111015
  Transmission Date: 20120608
  Serious: No
  Sender: FDA-Public Use
  Company Number: AE-2011-002395

PATIENT
  Age: 68 Year
  Sex: Male
  Weight: 70.3075 kg

DRUGS (7)
  1. CALCIUM CARBONATE [Concomitant]
  2. MULTIVITAMIN (MULTIVITAMIN ^LAPE^) [Concomitant]
  3. FISH OIL (FISH OIL) [Concomitant]
  4. INCIVEK [Suspect]
     Dosage: 2250 MG (750 MG, 1 IN 8 HR), ORAL
     Route: 048
     Dates: start: 20110824
  5. RIBAVIRIN [Concomitant]
  6. PEGASYS [Concomitant]
  7. VITAMIN D [Concomitant]

REACTIONS (2)
  - DRUG DOSE OMISSION [None]
  - FEELING ABNORMAL [None]
